FAERS Safety Report 5799828-5 (Version None)
Quarter: 2008Q3

REPORT INFORMATION
  Report Type: 
  Country: None (occurrence: None)
  Receive Date: 20080702
  Receipt Date: 20080702
  Transmission Date: 20090109
  Serious: Yes (Other)
  Sender: FDA-Public Use
  Company Number: None

PATIENT
  Sex: Female

DRUGS (6)
  1. DIGITEK 0.125MG MYLAN/BERTEK [Suspect]
     Dosage: 1 TABLET ORALLY DAILY
     Route: 048
     Dates: start: 20080411
  2. BENICAR [Concomitant]
  3. WARFARIN SODIUM [Concomitant]
  4. CARDIZEM CD [Concomitant]
  5. TOPROL-XL [Concomitant]
  6. PREMPRO [Concomitant]

REACTIONS (3)
  - FATIGUE [None]
  - NAUSEA [None]
  - PHARMACEUTICAL PRODUCT COMPLAINT [None]
